FAERS Safety Report 5249381-X (Version None)
Quarter: 2007Q1

REPORT INFORMATION
  Report Type: 
  Country: None (occurrence: None)
  Receive Date: 20070228
  Receipt Date: 20061010
  Transmission Date: 20070707
  Serious: No
  Sender: FDA-Public Use
  Company Number: US-GLAXOSMITHKLINE-A0620903A

PATIENT
  Age: 28 Year
  Sex: Female

DRUGS (3)
  1. VALTREX [Suspect]
     Indication: HERPES SIMPLEX
     Dosage: 1G THREE TIMES PER DAY
     Route: 048
     Dates: start: 20060911, end: 20060913
  2. CLINDAMYCIN [Suspect]
     Dosage: 300MG FOUR TIMES PER DAY
     Route: 048
     Dates: start: 20060907, end: 20060911
  3. BACTRIM [Suspect]
     Route: 048
     Dates: start: 20060907, end: 20060911

REACTIONS (4)
  - DRUG INTERACTION [None]
  - EYELID OEDEMA [None]
  - PHARYNGOLARYNGEAL PAIN [None]
  - TINNITUS [None]
